FAERS Safety Report 8469521-9 (Version None)
Quarter: 2012Q2

REPORT INFORMATION
  Report Type: 
  Country: None (occurrence: None)
  Receive Date: 20120626
  Receipt Date: 20120108
  Transmission Date: 20120825
  Serious: Yes (Hospitalization)
  Sender: FDA-Public Use
  Company Number: PHHY2012TR054478

PATIENT
  Age: 77 Year
  Sex: Male

DRUGS (4)
  1. REMERON [Concomitant]
  2. EXELON [Suspect]
     Indication: DEMENTIA ALZHEIMER'S TYPE
     Dosage: UNK UKN, UNK
  3. LANSOPRAZOLE [Concomitant]
  4. DESYREL [Concomitant]

REACTIONS (1)
  - ILL-DEFINED DISORDER [None]
